FAERS Safety Report 13527512 (Version 1)
Quarter: 2017Q2

REPORT INFORMATION
  Report Type: Spontaneous
  Country: US (occurrence: US)
  Receive Date: 20170509
  Receipt Date: 20170509
  Transmission Date: 20170830
  Serious: No
  Sender: FDA-Public Use
  Company Number: None

PATIENT
  Age: 75 Year
  Sex: Female
  Weight: 52.21 kg

DRUGS (3)
  1. RECLAST [Suspect]
     Active Substance: ZOLEDRONIC ACID
     Indication: OSTEOPOROSIS
     Dosage: 1 INTRAVENOUS INFUSION 1 YR. INJECTION (INFUSION)
     Route: 042
     Dates: start: 20170417, end: 20170417
  2. SYNTHROID [Concomitant]
     Active Substance: LEVOTHYROXINE SODIUM
  3. EPIDURAL [Concomitant]

REACTIONS (3)
  - Influenza like illness [None]
  - Urticaria [None]
  - Pain in jaw [None]

NARRATIVE: CASE EVENT DATE: 20170417
